FAERS Safety Report 12572662 (Version 1)
Quarter: 2016Q3

REPORT INFORMATION
  Report Type: Report from Study
  Country: US (occurrence: US)
  Receive Date: 20160720
  Receipt Date: 20160720
  Transmission Date: 20161109
  Serious: Yes (Death, Other)
  Sender: FDA-Public Use
  Company Number: US-ROCHE-1376858

PATIENT

DRUGS (4)
  1. CETUXIMAB [Suspect]
     Active Substance: CETUXIMAB
     Indication: COLON CANCER
     Dosage: OVER 120 MIN ON DAY 2 FOLLOWED BY 250MG/M2 IV OVER 60 MIN ON DAYS 8 AND 15 (CYCLE 1)?OVER 60-120 MIN
     Route: 042
  2. CETUXIMAB [Suspect]
     Active Substance: CETUXIMAB
     Indication: RECTAL CANCER
  3. PERTUZUMAB [Suspect]
     Active Substance: PERTUZUMAB
     Indication: COLON CANCER
     Dosage: OVER 30-60 MINUTES ON DAY 1
     Route: 042
  4. PERTUZUMAB [Suspect]
     Active Substance: PERTUZUMAB
     Indication: RECTAL CANCER

REACTIONS (6)
  - Stomatitis [Unknown]
  - Troponin I increased [Unknown]
  - Lung infection [Unknown]
  - Dyspnoea [Unknown]
  - Hypokalaemia [Unknown]
  - Myocardial infarction [Fatal]
